FAERS Safety Report 5188339-6 (Version None)
Quarter: 2006Q4

REPORT INFORMATION
  Report Type: 
  Country: None (occurrence: None)
  Receive Date: 20061221
  Receipt Date: 20061214
  Transmission Date: 20070319
  Serious: Yes (Hospitalization)
  Sender: FDA-Public Use
  Company Number: FR-ROCHE-475441

PATIENT
  Age: 93 Year
  Sex: Male
  Weight: 85 kg

DRUGS (7)
  1. RIVOTRIL [Suspect]
     Indication: DRUG USE FOR UNKNOWN INDICATION
     Dosage: 4 TO 5 DROPS AT BEDTIME.
     Route: 048
     Dates: start: 20060829, end: 20060909
  2. ZELITREX [Suspect]
     Indication: DRUG USE FOR UNKNOWN INDICATION
     Dosage: 1GRAM IN THE MORNING, AT LUNCH AND IN THE EVENING.
     Route: 048
     Dates: start: 20060907, end: 20060909
  3. MYOLASTAN [Suspect]
     Indication: DRUG USE FOR UNKNOWN INDICATION
     Dosage: EVERY EVENING.
     Route: 048
     Dates: start: 20060829, end: 20060909
  4. LAMALINE [Suspect]
     Indication: DRUG USE FOR UNKNOWN INDICATION
     Route: 048
     Dates: start: 20060907, end: 20060909
  5. UMULINE [Concomitant]
     Dosage: DRUG REPORTE AS UMULINE PROFIL 30. 24 IU IN THE MORNING AND 10 IU IN THE EVENING.ON 03 OCT 2006 DOS+
  6. HEXAQUINE [Concomitant]
     Dates: start: 20060829, end: 20060909
  7. VOLTAREN [Concomitant]
     Dosage: FIVE INJECTIONS PER WEEK.
     Route: 030
     Dates: start: 20060829, end: 20060909

REACTIONS (5)
  - AGITATION [None]
  - CONFUSIONAL STATE [None]
  - DEHYDRATION [None]
  - HALLUCINATION, VISUAL [None]
  - RENAL FAILURE ACUTE [None]
